FAERS Safety Report 12808550 (Version 1)
Quarter: 2016Q4

REPORT INFORMATION
  Report Type: Spontaneous
  Country: US (occurrence: US)
  Receive Date: 20161004
  Receipt Date: 20161004
  Transmission Date: 20170207
  Serious: No
  Sender: FDA-Public Use
  Company Number: US-MYLANLABS-2016M1035674

PATIENT
  Age: 21 Year
  Sex: Female

DRUGS (2)
  1. NORGESTIMATE AND ETHINYL ESTRADIOL TABLETS USP, 0.25 MG/0.035 MG [Suspect]
     Active Substance: ETHINYL ESTRADIOL\NORGESTIMATE
     Indication: CONTRACEPTION
     Dosage: 0.180/0.025, 0.215/0.025, 0.25/0.025 MG, QD
     Route: 048
     Dates: start: 201602
  2. PROZAC [Concomitant]
     Active Substance: FLUOXETINE HYDROCHLORIDE
     Dosage: UNK

REACTIONS (1)
  - Menorrhagia [Not Recovered/Not Resolved]

NARRATIVE: CASE EVENT DATE: 201608
